FAERS Safety Report 4873770-6 (Version None)
Quarter: 2006Q1

REPORT INFORMATION
  Report Type: 
  Country: None (occurrence: None)
  Receive Date: 20060103
  Receipt Date: 20060103
  Transmission Date: 20060701
  Serious: Yes (Life-Threatening, Hospitalization)
  Sender: FDA-Public Use
  Company Number: None

PATIENT
  Age: 75 Year
  Sex: Male
  Weight: 77.5651 kg

DRUGS (2)
  1. WARFARIN   5MG [Suspect]
     Indication: ATRIAL FIBRILLATION
     Dosage: 5 MG   QD  PO
     Route: 048
     Dates: start: 20000927, end: 20051226
  2. WARFARIN   5MG [Suspect]
     Indication: ATRIAL FLUTTER
     Dosage: 5 MG   QD  PO
     Route: 048
     Dates: start: 20000927, end: 20051226

REACTIONS (3)
  - DRUG TOXICITY [None]
  - EPISTAXIS [None]
  - HAEMORRHAGE [None]
